FAERS Safety Report 4624903-8 (Version None)
Quarter: 2005Q2

REPORT INFORMATION
  Report Type: 
  Country: None (occurrence: None)
  Receive Date: 20050401
  Receipt Date: 20050324
  Transmission Date: 20051028
  Serious: Yes (Hospitalization)
  Sender: FDA-Public Use
  Company Number: US-JNJFOC-20050306599

PATIENT
  Sex: Female

DRUGS (4)
  1. DURAGESIC-100 [Suspect]
     Route: 062
  2. OXYCODONE [Concomitant]
     Route: 049
  3. BEXTRA [Concomitant]
     Dosage: AT BEDTIME
     Route: 049
  4. TRAZODONE HCL [Concomitant]
     Indication: ANXIETY
     Dosage: AT BEDTIME
     Route: 049

REACTIONS (3)
  - BRONCHOSPASM [None]
  - INFLUENZA [None]
  - PNEUMONIA [None]
